FAERS Safety Report 13775654 (Version 1)
Quarter: 2017Q3

REPORT INFORMATION
  Report Type: Spontaneous
  Country: US (occurrence: US)
  Receive Date: 20170720
  Receipt Date: 20170720
  Transmission Date: 20171127
  Serious: No
  Sender: FDA-Public Use
  Company Number: US-BAUSCH-BL-2016-014508

PATIENT
  Age: 66 Year
  Sex: Female

DRUGS (2)
  1. PROLENSA [Suspect]
     Active Substance: BROMFENAC SODIUM
     Indication: POSTOPERATIVE CARE
     Route: 047
     Dates: start: 20160602
  2. BESIVANCE [Suspect]
     Active Substance: BESIFLOXACIN
     Indication: POSTOPERATIVE CARE
     Dosage: ON 02/JUN/2016 STARTED TREATMENT WITH RIGHT EYE, ON 14/JUN/2016 STARTED TREATMENT WITH LEFT EYE
     Route: 047
     Dates: start: 20160602

REACTIONS (3)
  - Mydriasis [Not Recovered/Not Resolved]
  - Vision blurred [Not Recovered/Not Resolved]
  - Photophobia [Not Recovered/Not Resolved]

NARRATIVE: CASE EVENT DATE: 201606
